FAERS Safety Report 6047428-4 (Version None)
Quarter: 2009Q1

REPORT INFORMATION
  Report Type: 
  Country: None (occurrence: None)
  Receive Date: 20090122
  Receipt Date: 20090115
  Transmission Date: 20090719
  Serious: No
  Sender: FDA-Public Use
  Company Number: US-B.I. PHARMACEUTICALS,INC./RIDGEFIELD-2009-BP-00569BP

PATIENT
  Sex: Female

DRUGS (7)
  1. ZANTAC 75 [Suspect]
     Indication: GASTROOESOPHAGEAL REFLUX DISEASE
     Dosage: 75MG
     Route: 048
     Dates: start: 20090112
  2. PREVACID [Concomitant]
     Indication: GASTROOESOPHAGEAL REFLUX DISEASE
     Dosage: 30MG
     Route: 048
     Dates: start: 20080301
  3. SYNTHROID [Concomitant]
     Indication: THYROID DISORDER
     Route: 048
  4. SINGULAIR [Concomitant]
     Dosage: 5MG
     Route: 048
     Dates: start: 20060101
  5. HUMALOG [Concomitant]
     Indication: DIABETES MELLITUS
     Route: 058
     Dates: start: 20071211
  6. LANTUS [Concomitant]
     Indication: DIABETES MELLITUS
     Dosage: 3.5U
     Route: 058
     Dates: start: 20071211
  7. CELEXA [Concomitant]
     Indication: ANXIETY
     Dosage: 20MG
     Route: 048
     Dates: start: 20080301

REACTIONS (1)
  - BLOOD GLUCOSE INCREASED [None]
